FAERS Safety Report 4442349-2 (Version None)
Quarter: 2004Q3

REPORT INFORMATION
  Report Type: 
  Country: None (occurrence: None)
  Receive Date: 20040903
  Receipt Date: 20040707
  Transmission Date: 20050211
  Serious: Yes (Hospitalization)
  Sender: FDA-Public Use
  Company Number: 2004UW14344

PATIENT
  Age: 49 Year
  Sex: Male

DRUGS (5)
  1. CRESTOR [Suspect]
     Dosage: 40 MG PO
     Route: 048
  2. ANGIOTENSIN II RECEPTOR BLOCKER [Concomitant]
  3. ANGIOETENSIN-CONVERTING ENZYME [Concomitant]
  4. BETA BLOCKER [Concomitant]
  5. OPIATES [Concomitant]

REACTIONS (3)
  - BLOOD CREATINE PHOSPHOKINASE INCREASED [None]
  - DRUG ABUSER [None]
  - SYNCOPE [None]
